FAERS Safety Report 8298808-8 (Version None)
Quarter: 2012Q1

REPORT INFORMATION
  Report Type: 
  Country: None (occurrence: None)
  Receive Date: 20120323
  Receipt Date: 20091201
  Transmission Date: 20120608
  Serious: Yes (Hospitalization)
  Sender: FDA-Public Use
  Company Number: PHEH2009US12485

PATIENT

DRUGS (1)
  1. TOBI [Suspect]

REACTIONS (2)
  - DRUG INTOLERANCE [None]
  - MALAISE [None]
